FAERS Safety Report 10149944 (Version 2)
Quarter: 2014Q2

REPORT INFORMATION
  Report Type: Spontaneous
  Country: FR (occurrence: FR)
  Receive Date: 20140502
  Receipt Date: 20140602
  Transmission Date: 20141212
  Serious: Yes (Other)
  Sender: FDA-Public Use
  Company Number: FR-ACTAVIS-2014-08536

PATIENT
  Age: 42 Year
  Sex: Male
  Weight: 67 kg

DRUGS (3)
  1. SERTRALINE [Suspect]
     Indication: DYSTHYMIC DISORDER
     Dosage: 50 MG, DAILY
     Route: 048
     Dates: start: 20140408, end: 20140415
  2. ZYPREXA VELOTAB [Suspect]
     Indication: PSYCHOTIC DISORDER
     Dosage: 20 MG, DAILY
     Route: 048
     Dates: start: 1998
  3. ZYPREXA VELOTAB [Suspect]
     Dosage: 15 MG, DAILY
     Route: 048

REACTIONS (6)
  - Delirium [Recovered/Resolved]
  - Road traffic accident [Recovered/Resolved]
  - Photopsia [Recovered/Resolved]
  - Feeling abnormal [Recovered/Resolved]
  - Product substitution issue [Unknown]
  - Suicide attempt [Recovered/Resolved]
